FAERS Safety Report 9496247 (Version 2)
Quarter: 2013Q3

REPORT INFORMATION
  Report Type: Spontaneous
  Country: CA (occurrence: None)
  Receive Date: 20130829
  Receipt Date: 20130830
  Transmission Date: 20140515
  Serious: Yes (Hospitalization)
  Sender: FDA-Public Use
  Company Number: CA-012696

PATIENT
  Age: 79 Year
  Sex: Male

DRUGS (1)
  1. DEGARELIX [Suspect]
     Indication: PROSTATE CANCER
     Route: 058

REACTIONS (3)
  - Pneumonia [None]
  - Myocardial infarction [None]
  - Device related infection [None]
